FAERS Safety Report 15189900 (Version 1)
Quarter: 2018Q3

REPORT INFORMATION
  Report Type: Report from Study
  Country: US (occurrence: US)
  Receive Date: 20180724
  Receipt Date: 20180724
  Transmission Date: 20181010
  Serious: No
  Sender: FDA-Public Use
  Company Number: US-SA-2018SA046305

PATIENT
  Age: 67 Year
  Sex: Female
  Weight: 88.9 kg

DRUGS (20)
  1. LEVEMIR [Concomitant]
     Active Substance: INSULIN DETEMIR
     Dosage: 100 DF,QD
     Route: 058
     Dates: start: 201703
  2. FLUTICASONE PROPIONATE/SALMETEROL XINAFOATE [Suspect]
     Active Substance: FLUTICASONE PROPIONATE\SALMETEROL XINAFOATE
     Dosage: 500 UG,BID
     Route: 055
     Dates: start: 20170427
  3. SALBUTAMOL [Suspect]
     Active Substance: ALBUTEROL
     Indication: ASTHMA
     Dosage: 2 DF,QD
     Route: 055
     Dates: start: 2010
  4. FLUTICASONE. [Concomitant]
     Active Substance: FLUTICASONE
     Dosage: 100 UG,QD
     Route: 045
     Dates: start: 2011
  5. ULTRAM [TRAMADOL HYDROCHLORIDE] [Concomitant]
     Dosage: 50 MG,QD
     Route: 048
     Dates: start: 2001
  6. LEVOTHYROXINE. [Concomitant]
     Active Substance: LEVOTHYROXINE
     Dosage: .175 MG,QD
     Route: 048
     Dates: start: 2010
  7. DILTIAZEM. [Concomitant]
     Active Substance: DILTIAZEM
     Dosage: 180 MG,QD
     Route: 048
     Dates: start: 1992
  8. HUMALOG [Concomitant]
     Active Substance: INSULIN LISPRO
     Dosage: 100 DF,QD
     Route: 058
     Dates: start: 1971
  9. CYANOCOBALAMIN. [Concomitant]
     Active Substance: CYANOCOBALAMIN
     Indication: PROPHYLAXIS
     Dosage: 2 DF,QD
     Route: 048
     Dates: start: 20161022
  10. NOVOLOG [Concomitant]
     Active Substance: INSULIN ASPART
     Dosage: 100 DF,QD
     Route: 058
     Dates: start: 201703
  11. ETODOLAC. [Concomitant]
     Active Substance: ETODOLAC
     Dosage: 400 MG,QD
     Route: 048
     Dates: start: 201707
  12. FLUTICASONE PROPIONATE/SALMETEROL XINAFOATE [Suspect]
     Active Substance: FLUTICASONE PROPIONATE\SALMETEROL XINAFOATE
     Indication: ASTHMA
     Dosage: 500 UG,BID
     Route: 055
     Dates: start: 2012, end: 20170426
  13. LANTUS [Concomitant]
     Active Substance: INSULIN GLARGINE
     Dosage: 100 DF,QD
     Route: 058
     Dates: start: 1971
  14. GLUCOTROL [Concomitant]
     Active Substance: GLIPIZIDE
     Dosage: 10 MG,QD
     Route: 048
     Dates: start: 1971
  15. JARDIANCE [Concomitant]
     Active Substance: EMPAGLIFLOZIN
     Dosage: 25 MG,QD
     Route: 048
     Dates: start: 201701
  16. DUPILUMAB [Suspect]
     Active Substance: DUPILUMAB
     Dosage: 300 MG,QOW
     Route: 058
     Dates: start: 20170511, end: 20180315
  17. METFORMIN [Concomitant]
     Active Substance: METFORMIN HYDROCHLORIDE
     Dosage: 1000 MG,QD
     Route: 048
     Dates: start: 1971
  18. MAGNESIUM [Concomitant]
     Active Substance: MAGNESIUM
     Indication: PROPHYLAXIS
     Dosage: 2 DF,QD
     Route: 048
     Dates: start: 20161122
  19. DUPILUMAB [Suspect]
     Active Substance: DUPILUMAB
     Indication: ASTHMA
     Dosage: 300 MG,1X
     Route: 058
     Dates: start: 20170427, end: 20170427
  20. BACLOFEN. [Concomitant]
     Active Substance: BACLOFEN
     Dosage: 20 MG,QD
     Route: 048
     Dates: start: 201703

REACTIONS (1)
  - Cellulitis [Recovered/Resolved]

NARRATIVE: CASE EVENT DATE: 20171215
